FAERS Safety Report 10084029 (Version 1)
Quarter: 2014Q2

REPORT INFORMATION
  Report Type: Spontaneous
  Country: JP (occurrence: None)
  Receive Date: 20140415
  Receipt Date: 20140415
  Transmission Date: 20141212
  Serious: Yes (Other)
  Sender: FDA-Public Use
  Company Number: 2014-000988

PATIENT
  Sex: 0

DRUGS (1)
  1. ACTONEL [Suspect]
     Route: 048

REACTIONS (1)
  - Atypical femur fracture [None]
